FAERS Safety Report 18939613 (Version 1)
Quarter: 2021Q1

REPORT INFORMATION
  Report Type: Spontaneous
  Country: US (occurrence: US)
  Receive Date: 20210225
  Receipt Date: 20210225
  Transmission Date: 20210420
  Serious: Yes (Hospitalization)
  Sender: FDA-Public Use
  Company Number: None

PATIENT
  Sex: Male
  Weight: 96.2 kg

DRUGS (3)
  1. LEUCOVORIN CALCIUM. [Concomitant]
     Active Substance: LEUCOVORIN CALCIUM
  2. 5?FLUOROURACIL (5?FU) [Suspect]
     Active Substance: FLUOROURACIL
  3. ELOXATIN [Concomitant]
     Active Substance: OXALIPLATIN

REACTIONS (9)
  - Abdominal pain upper [None]
  - Haemoglobin decreased [None]
  - Red blood cell count decreased [None]
  - Platelet count decreased [None]
  - Blood albumin decreased [None]
  - Nausea [None]
  - Vomiting [None]
  - Malnutrition [None]
  - Hypokalaemia [None]

NARRATIVE: CASE EVENT DATE: 20210207
